FAERS Safety Report 6735438-0 (Version None)
Quarter: 2010Q2

REPORT INFORMATION
  Report Type: 
  Country: None (occurrence: None)
  Receive Date: 20100521
  Receipt Date: 20100510
  Transmission Date: 20101027
  Serious: Yes (Other)
  Sender: FDA-Public Use
  Company Number: PHHY2010DE19336

PATIENT
  Sex: Female

DRUGS (4)
  1. ACLASTA [Suspect]
     Dosage: 5 MG
     Route: 042
     Dates: start: 20100101
  2. CALCIUM [Concomitant]
  3. VITAMIN D3 [Concomitant]
  4. BISOPROLOL FUMARATE [Concomitant]
     Dosage: 5 MG/ DAY
     Route: 048

REACTIONS (3)
  - FLUID RETENTION [None]
  - GAIT DISTURBANCE [None]
  - SWELLING [None]
